FAERS Safety Report 18201857 (Version 1)
Quarter: 2020Q3

REPORT INFORMATION
  Report Type: Spontaneous
  Country: US (occurrence: US)
  Receive Date: 20200826
  Receipt Date: 20200826
  Transmission Date: 20201103
  Serious: No
  Sender: FDA-Public Use
  Company Number: None

PATIENT
  Age: 47 Year
  Sex: Female
  Weight: 68.4 kg

DRUGS (1)
  1. GADAVIST [Suspect]
     Active Substance: GADOBUTROL

REACTIONS (5)
  - Pruritus [None]
  - Scan with contrast [None]
  - Burning sensation [None]
  - Formication [None]
  - Paraesthesia [None]

NARRATIVE: CASE EVENT DATE: 20200813
